FAERS Safety Report 10494516 (Version 1)
Quarter: 2014Q4

REPORT INFORMATION
  Report Type: Spontaneous
  Country: US (occurrence: None)
  Receive Date: 20141002
  Receipt Date: 20141002
  Transmission Date: 20150528
  Serious: No
  Sender: FDA-Public Use
  Company Number: None

PATIENT
  Age: 15 Year
  Sex: Male
  Weight: 59.1 kg

DRUGS (1)
  1. OMNITROPE [Suspect]
     Active Substance: SOMATROPIN
     Indication: BODY HEIGHT BELOW NORMAL
     Dosage: 6 DAYS A WEEK
     Route: 058
     Dates: start: 20111130

REACTIONS (5)
  - Headache [None]
  - Pain in extremity [None]
  - Musculoskeletal stiffness [None]
  - Local swelling [None]
  - Back pain [None]
